FAERS Safety Report 7569711-3 (Version None)
Quarter: 2011Q2

REPORT INFORMATION
  Report Type: 
  Country: None (occurrence: None)
  Receive Date: 20110624
  Receipt Date: 20110621
  Transmission Date: 20111010
  Serious: Yes (Disabling, Other)
  Sender: FDA-Public Use
  Company Number: US-PFIZER INC-2011137220

PATIENT
  Sex: Female
  Weight: 65.76 kg

DRUGS (4)
  1. PRILOSEC [Concomitant]
     Indication: GASTROOESOPHAGEAL REFLUX DISEASE
     Dosage: 75 MG, DAILY
  2. ZMAX [Suspect]
     Indication: LUNG INFECTION
  3. ZMAX [Suspect]
     Indication: PNEUMONIA
     Dosage: 60 ML, DAILY
     Route: 048
     Dates: start: 20110524, end: 20110525
  4. PREDNISONE [Suspect]
     Indication: DYSPNOEA
     Dosage: UNK, DAILY
     Route: 048
     Dates: start: 20110524, end: 20110601

REACTIONS (6)
  - DYSPNOEA [None]
  - CLOSTRIDIUM DIFFICILE COLITIS [None]
  - ARRHYTHMIA [None]
  - MUSCULAR WEAKNESS [None]
  - HEART RATE INCREASED [None]
  - DIARRHOEA [None]
